FAERS Safety Report 14824608 (Version 1)
Quarter: 2018Q2

REPORT INFORMATION
  Report Type: Report from Study
  Country: JP (occurrence: JP)
  Receive Date: 20180429
  Receipt Date: 20180429
  Transmission Date: 20180711
  Serious: Yes (Hospitalization, Other)
  Sender: FDA-Public Use
  Company Number: JP-AMGEN-JPNCT2018056677

PATIENT
  Age: 71 Year
  Sex: Male
  Weight: 68 kg

DRUGS (13)
  1. EPINASTINE HYDROCHLORIDE. [Concomitant]
     Active Substance: EPINASTINE HYDROCHLORIDE
     Indication: ECZEMA
     Dosage: 20 MG, QD
     Route: 048
  2. LYRICA [Concomitant]
     Active Substance: PREGABALIN
     Indication: CARPAL TUNNEL SYNDROME
     Dosage: 25 MG, UNK
     Route: 048
  3. BAYASPIRIN [Concomitant]
     Active Substance: ASPIRIN
     Indication: ANGINA PECTORIS
     Dosage: 100 MG, QD
     Route: 048
  4. SUMILU [Concomitant]
     Active Substance: FELBINAC
     Indication: BACK PAIN
     Dosage: UNK, AS NECESSARY
     Route: 061
  5. DARBEPOETIN ALFA - KHK [Suspect]
     Active Substance: DARBEPOETIN ALFA
     Indication: NEPHROGENIC ANAEMIA
     Dosage: 20 MUG, QWK
     Route: 042
     Dates: start: 20170501, end: 20170710
  6. FOSRENOL [Concomitant]
     Active Substance: LANTHANUM CARBONATE
     Indication: HYPERPHOSPHATAEMIA
     Dosage: 250 MG, TID
     Route: 048
  7. CALFINA [Concomitant]
     Active Substance: ALFACALCIDOL
     Indication: CHRONIC KIDNEY DISEASE-MINERAL AND BONE DISORDER
     Dosage: 0.5 MUG, QD
     Route: 048
  8. MYSER [Concomitant]
     Active Substance: DIFLUPREDNATE
     Indication: ECZEMA
     Dosage: UNK, BID
     Route: 061
  9. REGPARA [Concomitant]
     Active Substance: CINACALCET HYDROCHLORIDE
     Indication: HYPERPARATHYROIDISM SECONDARY
     Dosage: 50 MG, QD
     Route: 048
  10. SENNARIDE [Concomitant]
     Active Substance: SENNOSIDES A AND B
     Indication: CONSTIPATION
     Dosage: 24 MG, QD
     Route: 048
  11. RIONA [Concomitant]
     Active Substance: FERRIC CITRATE ANHYDROUS
     Indication: HYPERPHOSPHATAEMIA
     Dosage: 750 MG, UNK
     Route: 048
  12. LANSOPRAZOLE. [Concomitant]
     Active Substance: LANSOPRAZOLE
     Indication: GASTROOESOPHAGEAL REFLUX DISEASE
     Dosage: 30 MG, QD
     Route: 048
  13. THYRADIN S [Concomitant]
     Active Substance: LEVOTHYROXINE SODIUM
     Indication: HYPOTHYROIDISM
     Dosage: 37.5 MUG, QD
     Route: 048

REACTIONS (1)
  - Malignant neoplasm of renal pelvis [Recovering/Resolving]

NARRATIVE: CASE EVENT DATE: 20170531
